FAERS Safety Report 18461903 (Version 1)
Quarter: 2020Q4

REPORT INFORMATION
  Report Type: Report from Study
  Country: BR (occurrence: BR)
  Receive Date: 20201104
  Receipt Date: 20201104
  Transmission Date: 20210114
  Serious: Yes (Other)
  Sender: FDA-Public Use
  Company Number: NVSC2020BR293242

PATIENT
  Sex: Female

DRUGS (2)
  1. NAPRIX [Concomitant]
     Active Substance: RAMIPRIL
     Indication: PRODUCT USED FOR UNKNOWN INDICATION
     Dosage: UNK
     Route: 065
  2. ENTRESTO [Suspect]
     Active Substance: SACUBITRIL\VALSARTAN
     Indication: PRODUCT USED FOR UNKNOWN INDICATION
     Dosage: UNK
     Route: 065
     Dates: start: 202003

REACTIONS (13)
  - Dizziness [Recovered/Resolved]
  - Arrhythmia [Recovered/Resolved]
  - Heart rate increased [Recovered/Resolved]
  - Vertigo [Unknown]
  - Malaise [Unknown]
  - Fatigue [Unknown]
  - Hypersensitivity [Unknown]
  - Syncope [Unknown]
  - Labyrinthitis [Unknown]
  - Infarction [Unknown]
  - Skin discolouration [Unknown]
  - Raynaud^s phenomenon [Unknown]
  - Varicose ulceration [Unknown]
